FAERS Safety Report 10010540 (Version 1)
Quarter: 2014Q1

REPORT INFORMATION
  Report Type: Spontaneous
  Country: FR (occurrence: FR)
  Receive Date: 20140314
  Receipt Date: 20140314
  Transmission Date: 20141002
  Serious: Yes (Other)
  Sender: FDA-Public Use
  Company Number: FR-BRISTOL-MYERS SQUIBB COMPANY-20496196

PATIENT
  Age: 68 Year
  Sex: Male

DRUGS (3)
  1. ERBITUX SOLN FOR INF [Suspect]
     Indication: SQUAMOUS CELL CARCINOMA OF THE ORAL CAVITY
     Dosage: MAY12-JUL12,AUG12,07JAN14
     Route: 042
     Dates: start: 201205
  2. CISPLATIN [Suspect]
     Indication: SQUAMOUS CELL CARCINOMA OF THE ORAL CAVITY
     Dosage: CARBOPLATIN HOSPIRA
  3. FLUOROURACIL [Suspect]
     Indication: SQUAMOUS CELL CARCINOMA OF THE ORAL CAVITY
     Dosage: MAY12-JUL12,07JAN14
     Route: 042
     Dates: start: 201205

REACTIONS (2)
  - Haematotoxicity [Unknown]
  - Nephropathy toxic [Unknown]
